FAERS Safety Report 6862728-3 (Version None)
Quarter: 2010Q3

REPORT INFORMATION
  Report Type: 
  Country: None (occurrence: None)
  Receive Date: 20100721
  Receipt Date: 20100712
  Transmission Date: 20110219
  Serious: Yes (Other)
  Sender: FDA-Public Use
  Company Number: TR-ELI_LILLY_AND_COMPANY-TR201007002747

PATIENT
  Age: 30 Year
  Sex: Female

DRUGS (4)
  1. HUMULIN R [Suspect]
     Indication: GESTATIONAL DIABETES
     Dosage: 30 U, 3/D
     Route: 058
     Dates: start: 20100503, end: 20100602
  2. HUMULIN R [Suspect]
     Dosage: 10 IU, OTHER (NOON)
     Route: 058
     Dates: start: 20100503, end: 20100602
  3. HUMULIN R [Suspect]
     Dosage: 10 IU, EACH EVENING
     Route: 058
     Dates: start: 20100503, end: 20100602
  4. HUMULIN N [Suspect]
     Indication: GESTATIONAL DIABETES
     Dosage: 10 U, DAILY (1/D) (AT NIGHT)
     Route: 058
     Dates: start: 20100503, end: 20100602

REACTIONS (2)
  - ABORTION SPONTANEOUS [None]
  - DRUG EXPOSURE DURING PREGNANCY [None]
